FAERS Safety Report 6177744-7 (Version None)
Quarter: 2009Q2

REPORT INFORMATION
  Report Type: 
  Country: None (occurrence: None)
  Receive Date: 20090501
  Receipt Date: 20090501
  Transmission Date: 20091009
  Serious: No
  Sender: FDA-Public Use
  Company Number: None

PATIENT

DRUGS (1)
  1. LOVENOX [Suspect]
     Dosage: 40MG QD CUTANEOUS
     Route: 003
     Dates: start: 20090429, end: 20090429

REACTIONS (1)
  - DEVICE FAILURE [None]
